FAERS Safety Report 5023157-0 (Version None)
Quarter: 2006Q2

REPORT INFORMATION
  Report Type: 
  Country: None (occurrence: None)
  Receive Date: 20060428
  Receipt Date: 20060227
  Transmission Date: 20061013
  Serious: No
  Sender: FDA-Public Use
  Company Number: 012137

PATIENT
  Age: 36 Year
  Sex: Male

DRUGS (5)
  1. PRIALT [Suspect]
     Indication: BACK PAIN
     Dosage: SEE IMAGE
     Route: 037
     Dates: start: 20060127, end: 20060101
  2. PRIALT [Suspect]
     Indication: BACK PAIN
     Dosage: SEE IMAGE
     Route: 037
     Dates: start: 20060101, end: 20060201
  3. PRIALT [Suspect]
     Indication: BACK PAIN
     Dosage: SEE IMAGE
     Route: 037
     Dates: start: 20060201
  4. DILAUDID (HYDOMORPHONE HYDROCHLORIDE) [Concomitant]
  5. LASIX /00032601/ (FUROSEMIDE) [Concomitant]

REACTIONS (5)
  - MEDICAL DEVICE COMPLICATION [None]
  - OEDEMA PERIPHERAL [None]
  - PAIN [None]
  - RASH [None]
  - URINARY HESITATION [None]
